FAERS Safety Report 25669588 (Version 3)
Quarter: 2025Q3

REPORT INFORMATION
  Report Type: Spontaneous
  Country: TR (occurrence: TR)
  Receive Date: 20250812
  Receipt Date: 20250818
  Transmission Date: 20251021
  Serious: No
  Sender: PFIZER
  Company Number: TR-PFIZER INC-PV202500096387

PATIENT
  Age: 85 Year
  Sex: Female

DRUGS (3)
  1. MEROPENEM [Suspect]
     Active Substance: MEROPENEM
     Indication: Enterobacter bacteraemia
     Dosage: 3 G, DAILY (24 H)
  2. TIGECYCLINE [Suspect]
     Active Substance: TIGECYCLINE
     Indication: Enterobacter bacteraemia
     Dosage: 100 MG, DAILY (24 HOURS)
  3. CASPOFUNGIN [Concomitant]
     Active Substance: CASPOFUNGIN
     Indication: Enterobacter bacteraemia
     Dosage: 50 MG, DAILY

REACTIONS (1)
  - Off label use [Unknown]
